FAERS Safety Report 18692060 (Version 2)
Quarter: 2021Q1

REPORT INFORMATION
  Report Type: Spontaneous
  Country: TH (occurrence: TH)
  Receive Date: 20210102
  Receipt Date: 20210106
  Transmission Date: 20210419
  Serious: Yes (Hospitalization, Other)
  Sender: FDA-Public Use
  Company Number: NVSC2020TH339547

PATIENT
  Age: 92 Year
  Sex: Female
  Weight: 57 kg

DRUGS (15)
  1. FOLIC ACID. [Concomitant]
     Active Substance: FOLIC ACID
     Indication: PRODUCT USED FOR UNKNOWN INDICATION
     Dosage: UNK
     Route: 065
  2. SERTRALINE [Suspect]
     Active Substance: SERTRALINE HYDROCHLORIDE
     Dosage: 50 MG, QD (MORNING)
     Route: 065
  3. ALENDRONATE SODIUM. [Concomitant]
     Active Substance: ALENDRONATE SODIUM
     Indication: PRODUCT USED FOR UNKNOWN INDICATION
     Dosage: UNK
     Route: 065
  4. SERTRALINE [Suspect]
     Active Substance: SERTRALINE HYDROCHLORIDE
     Indication: PRODUCT USED FOR UNKNOWN INDICATION
     Dosage: 50 MG, QOD (EVERY OTHER NIGHT)
     Route: 065
  5. ARIPIPRAZOLE. [Concomitant]
     Active Substance: ARIPIPRAZOLE
     Indication: PRODUCT USED FOR UNKNOWN INDICATION
     Dosage: UNK
     Route: 065
  6. LEVODOPA BENSERAZIDE [Concomitant]
     Active Substance: BENSERAZIDE\LEVODOPA
     Indication: PRODUCT USED FOR UNKNOWN INDICATION
     Dosage: 0.25 DF, TID (BEFORE MEAL MORNING, LUNCH, EVENING)
     Route: 065
  7. MEMANTINE. [Concomitant]
     Active Substance: MEMANTINE
     Indication: PRODUCT USED FOR UNKNOWN INDICATION
     Dosage: 1 DF, QD (AFTER MEAL MORNING)
     Route: 065
  8. ESCITALOPRAM [Suspect]
     Active Substance: ESCITALOPRAM OXALATE
     Indication: PRODUCT USED FOR UNKNOWN INDICATION
     Dosage: 10 MG, QD (AFTER MEAL MORNING)
     Route: 065
  9. OLANZAPINE. [Concomitant]
     Active Substance: OLANZAPINE
     Indication: PRODUCT USED FOR UNKNOWN INDICATION
     Dosage: 0.25 DF, BID (2 PC AFTER MEAL MORNING AND BEFORE BED)
     Route: 065
  10. OMEPRAZOLE. [Concomitant]
     Active Substance: OMEPRAZOLE
     Indication: PRODUCT USED FOR UNKNOWN INDICATION
     Dosage: UNK
     Route: 065
  11. ALPRAZOLAM. [Concomitant]
     Active Substance: ALPRAZOLAM
     Indication: PRODUCT USED FOR UNKNOWN INDICATION
     Dosage: 1 DF, QHS
     Route: 065
  12. SIMVASTATIN. [Concomitant]
     Active Substance: SIMVASTATIN
     Indication: PRODUCT USED FOR UNKNOWN INDICATION
     Dosage: 0.5 DF, QHS
     Route: 065
  13. DONEPEZIL. [Suspect]
     Active Substance: DONEPEZIL
     Indication: PRODUCT USED FOR UNKNOWN INDICATION
     Dosage: 5 MG, QHS
     Route: 065
  14. FLUPENTIXOL W/MELITRACEN [Concomitant]
     Active Substance: FLUPENTIXOL\MELITRACEN
     Indication: PRODUCT USED FOR UNKNOWN INDICATION
     Dosage: 1 DF, QD (AFTER MEAL MORNING)
     Route: 065
  15. ETORICOXIB. [Concomitant]
     Active Substance: ETORICOXIB
     Indication: PRODUCT USED FOR UNKNOWN INDICATION
     Dosage: UNK
     Route: 065

REACTIONS (23)
  - Aggression [Unknown]
  - Hallucination, visual [Unknown]
  - Cerebral atrophy [Unknown]
  - Nausea [Unknown]
  - Depressed mood [Unknown]
  - Fall [Unknown]
  - Anxiety [Unknown]
  - Boredom [Unknown]
  - White matter lesion [Unknown]
  - Cerebral ventricle dilatation [Unknown]
  - Memory impairment [Unknown]
  - Hypophagia [Unknown]
  - Delirium [Recovering/Resolving]
  - Insomnia [Unknown]
  - Sleep talking [Unknown]
  - Confusional state [Unknown]
  - Gait disturbance [Unknown]
  - Hypertonia [Unknown]
  - Weight decreased [Unknown]
  - Central nervous system lesion [Unknown]
  - Lacunar infarction [Unknown]
  - Trismus [Unknown]
  - Somnolence [Unknown]
